FAERS Safety Report 15610371 (Version 1)
Quarter: 2018Q4

REPORT INFORMATION
  Report Type: Spontaneous
  Country: US (occurrence: US)
  Receive Date: 20181113
  Receipt Date: 20181113
  Transmission Date: 20190205
  Serious: No
  Sender: FDA-Public Use
  Company Number: US-ROCHE-2076687

PATIENT
  Age: 10 Year
  Sex: Female

DRUGS (1)
  1. TAMIFLU [Suspect]
     Active Substance: OSELTAMIVIR PHOSPHATE
     Indication: PRODUCT USED FOR UNKNOWN INDICATION
     Dosage: 6 MG/ML (60 ML ) TWICE A DAY ;ONGOING: YES
     Route: 048
     Dates: start: 20180214

REACTIONS (3)
  - Pyrexia [Unknown]
  - Tearfulness [Unknown]
  - Depressed mood [Unknown]

NARRATIVE: CASE EVENT DATE: 20180214
